FAERS Safety Report 7833134-X (Version None)
Quarter: 2011Q4

REPORT INFORMATION
  Report Type: 
  Country: None (occurrence: None)
  Receive Date: 20111024
  Receipt Date: 20111013
  Transmission Date: 20120403
  Serious: Yes (Other)
  Sender: FDA-Public Use
  Company Number: CH-JNJFOC-20110603550

PATIENT
  Age: 33 Year
  Sex: Male
  Weight: 89 kg

DRUGS (4)
  1. RISPERDAL CONSTA [Suspect]
     Indication: SCHIZOPHRENIA
     Route: 030
     Dates: start: 20100429, end: 20110428
  2. RISPERDAL [Suspect]
     Indication: PSYCHOTIC DISORDER
     Route: 048
     Dates: start: 20090501, end: 20100429
  3. RISPERDAL CONSTA [Suspect]
     Indication: PSYCHOTIC DISORDER
     Route: 030
     Dates: start: 20100429, end: 20110428
  4. RISPERDAL [Suspect]
     Indication: SCHIZOPHRENIA
     Route: 048
     Dates: start: 20090501, end: 20100429

REACTIONS (6)
  - FATIGUE [None]
  - ERECTILE DYSFUNCTION [None]
  - LIBIDO DECREASED [None]
  - WEIGHT INCREASED [None]
  - EJACULATION DISORDER [None]
  - ASTHENIA [None]
